FAERS Safety Report 6997309-4 (Version None)
Quarter: 2010Q3

REPORT INFORMATION
  Report Type: 
  Country: None (occurrence: None)
  Receive Date: 20100918
  Receipt Date: 20090930
  Transmission Date: 20110219
  Serious: No
  Sender: FDA-Public Use
  Company Number: US-WYE-H11361509

PATIENT
  Sex: Female

DRUGS (4)
  1. PRISTIQ [Suspect]
     Indication: DEPRESSION
     Route: 048
     Dates: start: 20090904
  2. AMBIEN [Concomitant]
  3. KLONOPIN [Concomitant]
  4. VYTORIN [Concomitant]

REACTIONS (2)
  - FATIGUE [None]
  - SOMNOLENCE [None]
